FAERS Safety Report 11368478 (Version 3)
Quarter: 2015Q3

REPORT INFORMATION
  Report Type: Spontaneous
  Country: DE (occurrence: DE)
  Receive Date: 20150811
  Receipt Date: 20150911
  Transmission Date: 20151125
  Serious: Yes (Other)
  Sender: FDA-Public Use
  Company Number: DE-AMGEN-DEUSP2015081227

PATIENT
  Age: 59 Year
  Sex: Male

DRUGS (3)
  1. ACICUTAN [Suspect]
     Active Substance: ACITRETIN
     Indication: PSORIASIS
     Dosage: 25 MG, 1X/DAY
     Route: 065
  2. METHOTREXATE SODIUM. [Suspect]
     Active Substance: METHOTREXATE SODIUM
     Indication: PSORIASIS
     Dosage: UNK
     Route: 065
  3. ENBREL [Suspect]
     Active Substance: ETANERCEPT
     Indication: PSORIASIS
     Dosage: 50 MG, WEEKLY
     Route: 058
     Dates: start: 201401, end: 201504

REACTIONS (8)
  - Blood cholesterol abnormal [Unknown]
  - Fatigue [Unknown]
  - Asthenia [Unknown]
  - Transaminases increased [Unknown]
  - Bladder cancer [Recovered/Resolved]
  - Psoriasis [Unknown]
  - Condition aggravated [Unknown]
  - Blood triglycerides abnormal [Unknown]

NARRATIVE: CASE EVENT DATE: 201411
